FAERS Safety Report 15417651 (Version 2)
Quarter: 2018Q4

REPORT INFORMATION
  Report Type: Spontaneous
  Country: JP (occurrence: JP)
  Receive Date: 20180924
  Receipt Date: 20181213
  Transmission Date: 20190204
  Serious: Yes (Hospitalization, Disabling, Other)
  Sender: FDA-Public Use
  Company Number: PHJP2018JP015090

PATIENT
  Age: 23 Year
  Sex: Female

DRUGS (1)
  1. IMUSERA [Suspect]
     Active Substance: FINGOLIMOD HYDROCHLORIDE
     Indication: MULTIPLE SCLEROSIS RELAPSE PROPHYLAXIS
     Dosage: 0.5 MG, UNK
     Route: 048
     Dates: start: 201205, end: 20180126

REACTIONS (13)
  - Diplopia [Unknown]
  - Swelling [Unknown]
  - Anorectal disorder [Recovering/Resolving]
  - Paralysis [Unknown]
  - Multiple sclerosis relapse [Recovered/Resolved]
  - Multiple sclerosis relapse [Recovered/Resolved with Sequelae]
  - Hypoaesthesia [Unknown]
  - Hemianopia homonymous [Unknown]
  - Hypertonic bladder [Unknown]
  - Urinary incontinence [Recovering/Resolving]
  - Bladder disorder [Recovering/Resolving]
  - Sensory disturbance [Unknown]
  - Rebound effect [Recovered/Resolved with Sequelae]

NARRATIVE: CASE EVENT DATE: 201603
